FAERS Safety Report 8242248-4 (Version None)
Quarter: 2012Q1

REPORT INFORMATION
  Report Type: 
  Country: None (occurrence: None)
  Receive Date: 20120314
  Receipt Date: 20100924
  Transmission Date: 20120608
  Serious: Yes (Other)
  Sender: FDA-Public Use
  Company Number: PHHY2010US64105

PATIENT
  Age: 28 Year
  Sex: Female

DRUGS (2)
  1. FANAPT [Suspect]
     Indication: SCHIZOPHRENIA
     Dosage: 6 MG, BID, ORAL ; 8 MG, BID, ORAL
     Route: 048
  2. SEROQUEL XR [Concomitant]

REACTIONS (1)
  - SCHIZOAFFECTIVE DISORDER [None]
